FAERS Safety Report 9445766 (Version 2)
Quarter: 2013Q3

REPORT INFORMATION
  Report Type: Spontaneous
  Country: JP (occurrence: JP)
  Receive Date: 20130807
  Receipt Date: 20130812
  Transmission Date: 20140515
  Serious: Yes (Other)
  Sender: FDA-Public Use
  Company Number: JP-PFIZER INC-2013223157

PATIENT
  Age: 79 Year
  Sex: Male

DRUGS (4)
  1. FLUOROURACIL [Suspect]
     Dosage: UNK
     Dates: start: 201104
  2. IRINOTECAN HCL [Suspect]
     Dosage: UNK
     Dates: start: 201104
  3. CALCIUM LEVOFOLINATE [Suspect]
     Dosage: UNK
     Dates: start: 201104
  4. PANITUMUMAB [Suspect]
     Dosage: UNK
     Dates: start: 201104

REACTIONS (1)
  - Interstitial lung disease [Recovered/Resolved]
